FAERS Safety Report 6809599-9 (Version None)
Quarter: 2010Q2

REPORT INFORMATION
  Report Type: 
  Country: None (occurrence: None)
  Receive Date: 20100630
  Receipt Date: 20100624
  Transmission Date: 20101027
  Serious: Yes (Hospitalization)
  Sender: FDA-Public Use
  Company Number: NL-B.I. PHARMACEUTICALS,INC./RIDGEFIELD-2010-NL-00324NL

PATIENT
  Age: 64 Year
  Sex: Male

DRUGS (1)
  1. PERSANTIN [Suspect]
     Dosage: 400 MG
     Dates: start: 20080801, end: 20100601

REACTIONS (1)
  - CARDIAC DISORDER [None]
